FAERS Safety Report 8429440-0 (Version None)
Quarter: 2012Q2

REPORT INFORMATION
  Report Type: 
  Country: None (occurrence: None)
  Receive Date: 20120612
  Receipt Date: 20120606
  Transmission Date: 20120825
  Serious: Yes (Other)
  Sender: FDA-Public Use
  Company Number: JP-SANOFI-AVENTIS-2012SA041037

PATIENT

DRUGS (1)
  1. INSULIN GLARGINE [Suspect]
     Indication: TYPE 2 DIABETES MELLITUS
     Route: 058
     Dates: start: 20120316

REACTIONS (5)
  - GAIT DISTURBANCE [None]
  - DISCOMFORT [None]
  - PAIN [None]
  - FRACTURE [None]
  - ACTIVITIES OF DAILY LIVING IMPAIRED [None]
